FAERS Safety Report 7383702-7 (Version None)
Quarter: 2011Q1

REPORT INFORMATION
  Report Type: 
  Country: None (occurrence: None)
  Receive Date: 20110325
  Receipt Date: 20110325
  Transmission Date: 20110831
  Serious: No
  Sender: FDA-Public Use
  Company Number: None

PATIENT
  Sex: Male
  Weight: 18.6 kg

DRUGS (4)
  1. MERCAPTOPURINE [Suspect]
     Dosage: 3300 MG
     Dates: end: 20110320
  2. VINCRISTINE SULFATE [Suspect]
     Dosage: 3.3 MG
     Dates: end: 20110228
  3. PREDNISONE [Suspect]
     Dosage: 450 MG
     Dates: end: 20110305
  4. METHOTREXATE [Suspect]
     Dosage: 112 MG
     Dates: end: 20110314

REACTIONS (1)
  - ALANINE AMINOTRANSFERASE INCREASED [None]
